FAERS Safety Report 10219643 (Version 1)
Quarter: 2014Q2

REPORT INFORMATION
  Report Type: Spontaneous
  Country: US (occurrence: None)
  Receive Date: 20140603
  Receipt Date: 20140603
  Transmission Date: 20141212
  Serious: Yes (Hospitalization, Disabling)
  Sender: FDA-Public Use
  Company Number: IDR-00871

PATIENT
  Age: 58 Year
  Sex: Male

DRUGS (5)
  1. INDERAL LA [Suspect]
     Indication: ESSENTIAL TREMOR
     Route: 048
     Dates: start: 1999, end: 2013
  2. LIPITOR (ATORVASTATIN CALCIUM) [Concomitant]
  3. EFFEXOR (VENLAFAXINE) [Concomitant]
  4. SEROQUEL (QUETIAPINE) [Concomitant]
  5. ATIVAN (LORAZEPAM) [Concomitant]

REACTIONS (10)
  - Major depression [None]
  - Crying [None]
  - Memory impairment [None]
  - Incorrect dose administered [None]
  - Toxicity to various agents [None]
  - Foot fracture [None]
  - Heart rate decreased [None]
  - Blood pressure decreased [None]
  - Loss of consciousness [None]
  - Asthenia [None]
